FAERS Safety Report 7042983-X (Version None)
Quarter: 2010Q4

REPORT INFORMATION
  Report Type: 
  Country: None (occurrence: None)
  Receive Date: 20101013
  Receipt Date: 20100927
  Transmission Date: 20110411
  Serious: Yes (Other)
  Sender: FDA-Public Use
  Company Number: PHEH2008US04221

PATIENT
  Sex: Female

DRUGS (8)
  1. ZOMETA [Suspect]
     Indication: NEOPLASM MALIGNANT
     Dosage: 4MG
     Route: 042
     Dates: start: 20030812, end: 20061024
  2. CHEMOTHERAPEUTICS NOS [Concomitant]
  3. DEXAMETHASONE [Concomitant]
     Dosage: 10MG
     Route: 042
  4. TAXOL [Concomitant]
     Dosage: UNK
     Dates: start: 20030801
  5. HERCEPTIN [Concomitant]
     Dosage: UNK
     Dates: start: 20030801
  6. PAXIL [Concomitant]
  7. PROTONIX [Concomitant]
  8. TOPROL-XL [Concomitant]

REACTIONS (29)
  - ANXIETY [None]
  - ASTHMA [None]
  - BACK PAIN [None]
  - BASEDOW'S DISEASE [None]
  - COUGH [None]
  - DECREASED INTEREST [None]
  - DIABETES MELLITUS [None]
  - DIVERTICULUM INTESTINAL [None]
  - FATIGUE [None]
  - GENERAL PHYSICAL HEALTH DETERIORATION [None]
  - GLOSSODYNIA [None]
  - GOITRE [None]
  - HAEMANGIOMA [None]
  - INJURY [None]
  - LYMPHADENOPATHY [None]
  - MASTICATION DISORDER [None]
  - OSTEONECROSIS OF JAW [None]
  - PAIN [None]
  - PAIN IN JAW [None]
  - PERIODONTITIS [None]
  - PNEUMONIA [None]
  - PYREXIA [None]
  - SCAR [None]
  - SENSITIVITY OF TEETH [None]
  - SPINAL DISORDER [None]
  - TOOTH EXTRACTION [None]
  - TOOTH REPAIR [None]
  - VISION BLURRED [None]
  - VULVOVAGINAL MYCOTIC INFECTION [None]
